FAERS Safety Report 14562720 (Version 1)
Quarter: 2018Q1

REPORT INFORMATION
  Report Type: Spontaneous
  Country: CA (occurrence: CA)
  Receive Date: 20180222
  Receipt Date: 20180222
  Transmission Date: 20180509
  Serious: Yes (Other)
  Sender: FDA-Public Use
  Company Number: CA-ACS-001003

PATIENT
  Age: 9 Month
  Sex: Female

DRUGS (2)
  1. CEFTRIAXONE. [Suspect]
     Active Substance: CEFTRIAXONE
     Indication: ESCHERICHIA INFECTION
     Route: 042
  2. AMOXICILLIN 80 MG/ CLAVULANATE [Suspect]
     Active Substance: AMOXICILLIN\CLAVULANATE POTASSIUM
     Indication: ESCHERICHIA INFECTION
     Route: 065

REACTIONS (10)
  - Coagulopathy [Recovered/Resolved]
  - Dysbacteriosis [Unknown]
  - Contusion [None]
  - Vitamin K deficiency [None]
  - Haemoglobin decreased [None]
  - Haematocrit decreased [None]
  - Epistaxis [None]
  - Disseminated intravascular coagulation [None]
  - Sepsis [None]
  - Hepatic function abnormal [None]
